FAERS Safety Report 9772935 (Version 1)
Quarter: 2013Q4

REPORT INFORMATION
  Report Type: Spontaneous
  Country: CA (occurrence: CA)
  Receive Date: 20131219
  Receipt Date: 20131219
  Transmission Date: 20140711
  Serious: Yes (Life-Threatening, Hospitalization)
  Sender: FDA-Public Use
  Company Number: CA-B.I. PHARMACEUTICALS,INC./RIDGEFIELD-2013-BI-42805CN

PATIENT
  Age: 97 Year
  Sex: Female
  Weight: 45 kg

DRUGS (9)
  1. PRADAXA [Suspect]
     Dosage: 150 MG
     Route: 065
  2. AMLODIPINE [Concomitant]
  3. ATENOLOL BP [Concomitant]
  4. CIPRALEX [Concomitant]
  5. DEXAMETHASONE [Concomitant]
  6. NOVOMIX 30 (PENFILL CARTRIDGE) [Concomitant]
     Route: 058
  7. PREVACID [Concomitant]
  8. RAMIPRIL [Concomitant]
  9. SYNTHROID [Concomitant]

REACTIONS (2)
  - Cerebral haemorrhage [Not Recovered/Not Resolved]
  - Fall [Not Recovered/Not Resolved]
